FAERS Safety Report 24958884 (Version 2)
Quarter: 2025Q1

REPORT INFORMATION
  Report Type: Report from Study
  Country: BR (occurrence: BR)
  Receive Date: 20250212
  Receipt Date: 20250221
  Transmission Date: 20250408
  Serious: Yes (Death, Hospitalization)
  Sender: BIOGEN
  Company Number: BR-BIOGEN-2025BI01299982

PATIENT
  Sex: Female

DRUGS (1)
  1. TYSABRI [Suspect]
     Active Substance: NATALIZUMAB
     Indication: Multiple sclerosis
     Route: 050

REACTIONS (2)
  - Increased bronchial secretion [Fatal]
  - Lung disorder [Fatal]
